FAERS Safety Report 25356359 (Version 1)
Quarter: 2025Q2

REPORT INFORMATION
  Report Type: Spontaneous
  Country: PT (occurrence: PT)
  Receive Date: 20250526
  Receipt Date: 20250526
  Transmission Date: 20250717
  Serious: Yes (Hospitalization, Other)
  Sender: MERCK SHARP & DOHME LLC
  Company Number: PT-009507513-2287844

PATIENT
  Age: 69 Year
  Sex: Male

DRUGS (2)
  1. PEMBROLIZUMAB [Suspect]
     Active Substance: PEMBROLIZUMAB
     Indication: Clear cell renal cell carcinoma
     Route: 042
     Dates: start: 202405
  2. AXITINIB [Suspect]
     Active Substance: AXITINIB
     Indication: Clear cell renal cell carcinoma

REACTIONS (7)
  - Acute kidney injury [Unknown]
  - Hypertension [Unknown]
  - Drug-induced liver injury [Unknown]
  - Diarrhoea [Unknown]
  - Thrombocytopenia [Unknown]
  - Tremor [Unknown]
  - Hypovolaemia [Unknown]

NARRATIVE: CASE EVENT DATE: 20240101
